FAERS Safety Report 13146612 (Version 1)
Quarter: 2017Q1

REPORT INFORMATION
  Report Type: Report from Study
  Country: US (occurrence: US)
  Receive Date: 20170125
  Receipt Date: 20170125
  Transmission Date: 20170428
  Serious: Yes (Hospitalization)
  Sender: FDA-Public Use
  Company Number: PHEH2017US002288

PATIENT
  Sex: Female

DRUGS (1)
  1. TOBI [Suspect]
     Active Substance: TOBRAMYCIN
     Indication: ACCIDENT
     Dosage: UNK, BID (NEBULIZED)
     Route: 055

REACTIONS (2)
  - Dyspnoea [Unknown]
  - Product use issue [Unknown]
